FAERS Safety Report 20601986 (Version 3)
Quarter: 2022Q2

REPORT INFORMATION
  Report Type: Spontaneous
  Country: US (occurrence: US)
  Receive Date: 20220316
  Receipt Date: 20220617
  Transmission Date: 20220720
  Serious: No
  Sender: FDA-Public Use
  Company Number: US-SK LIFE SCIENCE, INC-SKPVG-2022-000065

PATIENT

DRUGS (50)
  1. XCOPRI [Suspect]
     Active Substance: CENOBAMATE
     Indication: Seizure
     Dosage: 12.5 MILLIGRAM
     Route: 048
     Dates: start: 202011
  2. XCOPRI [Suspect]
     Active Substance: CENOBAMATE
     Dosage: 25 MILLIGRAM
     Route: 048
  3. XCOPRI [Suspect]
     Active Substance: CENOBAMATE
     Dosage: 50 MILLIGRAM
     Route: 048
  4. XCOPRI [Suspect]
     Active Substance: CENOBAMATE
     Dosage: 100 MILLIGRAM
     Route: 048
  5. XCOPRI [Suspect]
     Active Substance: CENOBAMATE
     Dosage: 150 MILLIGRAM, QD, AT BEDTIME
     Route: 048
     Dates: start: 20210531, end: 20220201
  6. XCOPRI [Suspect]
     Active Substance: CENOBAMATE
     Dosage: 75 MG (1/2 OF 150MG TAB) Q HS
     Route: 048
     Dates: start: 20210929, end: 20220201
  7. XCOPRI [Suspect]
     Active Substance: CENOBAMATE
     Dosage: 100 MILLIGRAM, QD AT BEDTIME
     Route: 048
     Dates: start: 20210929, end: 20220201
  8. XCOPRI [Suspect]
     Active Substance: CENOBAMATE
     Dosage: 200 MILLIGRAM, QD
     Route: 048
  9. XCOPRI [Suspect]
     Active Substance: CENOBAMATE
     Dosage: 175 MILLIGRAM, QD
     Route: 048
     Dates: start: 2021
  10. DEPAKOTE [Suspect]
     Active Substance: DIVALPROEX SODIUM
     Indication: Product used for unknown indication
     Dosage: 250 MILLIGRAM, 1 TABLET EVERY MORNING AND 1 TABLET NOON
     Route: 048
     Dates: start: 20211129
  11. DEPAKOTE [Suspect]
     Active Substance: DIVALPROEX SODIUM
     Dosage: 500 MILLIGRAM, 2 TABLETS AT BEDTIME
     Route: 048
     Dates: start: 20211129
  12. INTUNIV [Concomitant]
     Active Substance: GUANFACINE HYDROCHLORIDE
     Indication: Product used for unknown indication
     Dosage: 2 MILLIGRAM, 1 TABLET DAILY AT BEDTIME AND AT NOON DAILY
     Route: 048
     Dates: start: 20211123, end: 20220111
  13. INTUNIV [Concomitant]
     Active Substance: GUANFACINE HYDROCHLORIDE
     Dosage: 3 MILLIGRAM, QD
     Route: 048
  14. EPIDIOLEX [Concomitant]
     Active Substance: CANNABIDIOL
     Indication: Product used for unknown indication
     Dosage: 5 MILLILITER, BID, 100MG,ML, SOLUTION
     Route: 048
     Dates: start: 20210309, end: 20220111
  15. EPIDIOLEX [Concomitant]
     Active Substance: CANNABIDIOL
     Dosage: 2 MILLILITER, BID, 100MG,ML, SOLUTION
     Route: 048
  16. ZITHROMAX [Concomitant]
     Active Substance: AZITHROMYCIN DIHYDRATE
     Indication: Product used for unknown indication
     Dosage: 250 MILLIGRAM, QD, 1 TAB, TAKE 2 TABS AND THEN 1 TAB QD DAYS 2 THROUGH 5
     Route: 048
     Dates: start: 20211221
  17. THORAZINE                          /00011901/ [Concomitant]
     Indication: Behaviour disorder
     Dosage: 50 MILLIGRAM, QD (2 TABS) AT BEDTIME
     Route: 048
     Dates: start: 20211220, end: 20220411
  18. THORAZINE                          /00011901/ [Concomitant]
     Dosage: 275 MILLIGRAM, QD
     Route: 048
  19. THORAZINE                          /00011901/ [Concomitant]
     Dosage: 75 MILLIGRAM, QD, BED TIME
     Route: 048
  20. COLACE [Concomitant]
     Active Substance: DOCUSATE SODIUM
     Indication: Product used for unknown indication
     Dosage: 100 MILLIGRAM CAPSULE, QD
     Route: 048
     Dates: start: 20211220
  21. ATIVAN [Concomitant]
     Active Substance: LORAZEPAM
     Indication: Seizure
     Dosage: 0.5 MILLIGRAM, EVERY MORNING
     Route: 048
     Dates: start: 20200824
  22. ATIVAN [Concomitant]
     Active Substance: LORAZEPAM
     Indication: Anxiety
     Dosage: 2-4 MILLIGRAM, PRN, SEIZURE GREATER THAN 5 MIN
     Route: 048
     Dates: start: 20200825
  23. ATIVAN [Concomitant]
     Active Substance: LORAZEPAM
     Indication: Restlessness
     Dosage: 0.5 MILLIGRAM, Q6H, PRN FOR SEIZURE GREATER THAN 2 MIN
     Route: 048
     Dates: start: 20211208
  24. ATIVAN [Concomitant]
     Active Substance: LORAZEPAM
     Indication: Agitation
     Dosage: 1 MILLIGRAM, I TAB, QD, AT BEDTIME
     Route: 048
     Dates: start: 20211220
  25. ATIVAN [Concomitant]
     Active Substance: LORAZEPAM
     Dosage: 2 MILLIGRAM (HALF TABLET), Q6H
     Route: 048
     Dates: start: 20211220, end: 20220331
  26. PROMETRIUM [Concomitant]
     Active Substance: PROGESTERONE
     Indication: Product used for unknown indication
     Dosage: 200 MILLIGRAM, QD
     Route: 048
     Dates: start: 20211220
  27. LEXAPRO [Concomitant]
     Active Substance: ESCITALOPRAM OXALATE
     Indication: Product used for unknown indication
     Dosage: 10 MILLIGRAM, QD
     Route: 048
     Dates: start: 20211123
  28. AUGMENTIN                          /00756801/ [Concomitant]
     Indication: Product used for unknown indication
     Dosage: 875/125MG, BID
     Route: 048
     Dates: start: 20211118, end: 20211230
  29. DESOWEN [Concomitant]
     Active Substance: DESONIDE
     Indication: Product used for unknown indication
     Dosage: 0.05 PERCENT, BID, 1 APPLICABTION TO THE AFFECTED AREA
     Route: 065
     Dates: start: 20211111
  30. BACTROBAN                          /00753901/ [Concomitant]
     Indication: Product used for unknown indication
     Dosage: 2 PERCENT, TID, 1 APPLICABTION TO AFFECTED AREA
     Route: 065
     Dates: start: 20211111
  31. ZANAFLEX [Concomitant]
     Active Substance: TIZANIDINE HYDROCHLORIDE
     Indication: Agitation
     Dosage: 2 MILLIGRAM, TAKE 3 TABS EVERY NIGHT AT BEDTIME
     Route: 048
     Dates: start: 20210719
  32. ZANAFLEX [Concomitant]
     Active Substance: TIZANIDINE HYDROCHLORIDE
     Indication: Insomnia
     Dosage: 4 MILLIGRAM, Q6H, PRN
     Route: 048
     Dates: start: 20211011
  33. ZANAFLEX [Concomitant]
     Active Substance: TIZANIDINE HYDROCHLORIDE
     Dosage: 4 MILLIGRAM, Q6H, PRN
     Route: 048
     Dates: start: 20201216
  34. ZANAFLEX [Concomitant]
     Active Substance: TIZANIDINE HYDROCHLORIDE
     Dosage: 2 MILLIGRAM, Q6H,PRN
     Route: 048
     Dates: start: 20200126
  35. PYRIDOXINE [Concomitant]
     Active Substance: PYRIDOXINE
     Indication: Product used for unknown indication
     Dosage: 100 MILLIGRAM, QD, EVERY MORNING
     Route: 048
     Dates: start: 20211004
  36. NAMENDA [Concomitant]
     Active Substance: MEMANTINE HYDROCHLORIDE
     Indication: Memory impairment
     Dosage: 28 MILLIGRAM, QD, EVERY EVENING
     Route: 048
     Dates: start: 20210814
  37. IRON                               /00023503/ [Concomitant]
     Indication: Product used for unknown indication
     Dosage: 325 MG (65MG FE), QD WITH DINNER
     Route: 048
     Dates: start: 20210803
  38. SENOKOT [Concomitant]
     Active Substance: SENNOSIDES
     Indication: Product used for unknown indication
     Dosage: 8.6 MILLIGRAM, QD, AT BEDTIME M-W-F
     Route: 048
     Dates: start: 20190916
  39. SENOKOT [Concomitant]
     Active Substance: SENNOSIDES
     Dosage: 8.6 MILLIGRAM, QD
     Route: 048
     Dates: start: 20210628
  40. LEVSIN SL [Concomitant]
     Active Substance: HYOSCYAMINE SULFATE
     Indication: Product used for unknown indication
     Dosage: 0.125 MILLIGRAM, Q4H
     Route: 060
     Dates: start: 20210607
  41. DIAZEPAM [Concomitant]
     Active Substance: DIAZEPAM
     Indication: Seizure
     Dosage: 20 MILLIGRAM, PRN
     Route: 045
     Dates: start: 20201224
  42. MIDAZOLAM [Concomitant]
     Active Substance: MIDAZOLAM
     Indication: Seizure
     Dosage: 5 MG/0.1ML, PRN
     Route: 045
     Dates: start: 20201224
  43. MOTRIN [Concomitant]
     Active Substance: IBUPROFEN
     Indication: Product used for unknown indication
     Dosage: 600 MILLIGRAM, TID, TAKEN WITH FOOD
     Route: 048
     Dates: start: 20200207
  44. TYLENOL                            /00020001/ [Concomitant]
     Indication: Product used for unknown indication
     Dosage: 500 MILLIGRAM, Q6H
     Route: 048
  45. ALEVE [Concomitant]
     Active Substance: NAPROXEN SODIUM
     Indication: Product used for unknown indication
     Dosage: 220 MILLIGRAM, PRN
     Route: 048
  46. DIASTAT ACUDIAL [Concomitant]
     Active Substance: DIAZEPAM
     Indication: Seizure
     Dosage: 20 MILLIGRAM, PRN
     Route: 054
     Dates: start: 20190819
  47. MAGNESIUM CITRATE [Concomitant]
     Active Substance: MAGNESIUM CITRATE
     Indication: Product used for unknown indication
     Dosage: 1 CAP, AT 7AM AND 6.30 PM
     Route: 048
  48. MELATONIN [Concomitant]
     Active Substance: MELATONIN
     Indication: Product used for unknown indication
     Dosage: 3 MILLIGRAM, QD, AT BEDTIME 2 CAPSULES
     Route: 048
  49. VILOXAZINE [Concomitant]
     Active Substance: VILOXAZINE
     Indication: Product used for unknown indication
     Dosage: 100 MILLIGRAM, QD
     Route: 048
     Dates: start: 20211220
  50. PEPCID                             /00706001/ [Concomitant]
     Indication: Product used for unknown indication
     Dosage: 40 MILLIGRAM, BID
     Route: 048
     Dates: start: 20211029

REACTIONS (10)
  - Fall [Recovered/Resolved]
  - Skin laceration [Recovered/Resolved]
  - Alopecia [Recovered/Resolved]
  - Blood zinc decreased [Recovered/Resolved]
  - Wrong technique in product usage process [Recovered/Resolved]
  - Constipation [Unknown]
  - Weight decreased [Recovering/Resolving]
  - Sedation [Unknown]
  - Dizziness [Unknown]
  - Decreased appetite [Unknown]

NARRATIVE: CASE EVENT DATE: 20210601
